FAERS Safety Report 23439670 (Version 1)
Quarter: 2024Q1

REPORT INFORMATION
  Report Type: Spontaneous
  Country: US (occurrence: US)
  Receive Date: 20240124
  Receipt Date: 20240124
  Transmission Date: 20240410
  Serious: Yes (Hospitalization)
  Sender: FDA-Public Use
  Company Number: US-BIOGEN-2024BI01246218

PATIENT
  Age: 57 Year

DRUGS (1)
  1. PLEGRIDY [Suspect]
     Active Substance: PEGINTERFERON BETA-1A
     Indication: Multiple sclerosis
     Route: 050
     Dates: end: 2023

REACTIONS (2)
  - Systemic lupus erythematosus [Unknown]
  - Cryptococcus test positive [Unknown]

NARRATIVE: CASE EVENT DATE: 20231201
